FAERS Safety Report 9893047 (Version 1)
Quarter: 2014Q1

REPORT INFORMATION
  Report Type: Spontaneous
  Country: US (occurrence: US)
  Receive Date: 20140213
  Receipt Date: 20140213
  Transmission Date: 20141002
  Serious: Yes (Hospitalization, Other)
  Sender: FDA-Public Use
  Company Number: US-AMGEN-USASP2014009444

PATIENT
  Age: 23 Year
  Sex: Female

DRUGS (1)
  1. ENBREL [Suspect]
     Indication: PSORIASIS
     Dosage: 50 MG, QWK
     Route: 065
     Dates: start: 20061001

REACTIONS (12)
  - Gastric banding [Recovered/Resolved]
  - Device dislocation [Recovered/Resolved]
  - Bladder injury [Recovered/Resolved]
  - Haematuria [Not Recovered/Not Resolved]
  - Cystitis [Not Recovered/Not Resolved]
  - Weight decreased [Recovered/Resolved]
  - Gastrooesophageal reflux disease [Not Recovered/Not Resolved]
  - Lupus-like syndrome [Not Recovered/Not Resolved]
  - Postoperative wound infection [Recovered/Resolved]
  - Scar [Not Recovered/Not Resolved]
  - Inflammation [Not Recovered/Not Resolved]
  - Drug effect incomplete [Not Recovered/Not Resolved]
